FAERS Safety Report 4730136-7 (Version None)
Quarter: 2005Q3

REPORT INFORMATION
  Report Type: 
  Country: None (occurrence: None)
  Receive Date: 20050801
  Receipt Date: 20050726
  Transmission Date: 20060218
  Serious: Yes (Death)
  Sender: FDA-Public Use
  Company Number: 200515981US

PATIENT
  Sex: Male
  Weight: 93 kg

DRUGS (3)
  1. LANTUS [Suspect]
     Indication: DIABETES MELLITUS NON-INSULIN-DEPENDENT
     Dosage: DOSE UNIT: UNITS
     Dates: start: 20040101
  2. HUMULINE [Concomitant]
     Dosage: DOSE: NOT PROVIDED
     Dates: end: 20041116
  3. GLUCOPHAGE [Concomitant]
     Dosage: DOSE: NOT PROVIDED
     Dates: end: 20041116

REACTIONS (2)
  - ANEURYSM [None]
  - CEREBROVASCULAR ACCIDENT [None]
